FAERS Safety Report 9908348 (Version 1)
Quarter: 2013Q2

REPORT INFORMATION
  Report Type: Spontaneous
  Country: US (occurrence: None)
  Receive Date: 20130305
  Receipt Date: 20130305
  Transmission Date: 20140414
  Serious: Yes (Other)
  Sender: FDA-Public Use
  Company Number: 163-21880-12123438

PATIENT
  Age: 55 Year
  Sex: Female
  Weight: 71.67 kg

DRUGS (9)
  1. REVLIMID (LENALIDOMIDE) (CAPSULES) [Suspect]
     Indication: PLASMA CELL MYELOMA
     Dosage: 21 IN 21 DAYS
     Route: 048
     Dates: start: 20090819
  2. ACYCLOVIR (ACICLOVIR) (TABLETS) [Concomitant]
  3. ASPIRIN (ACETYLSALICYLIC ACID)(CHEWABLE TABLET) [Concomitant]
  4. DIFULCAN (FLUCONAZOLE)(TABLETS) [Concomitant]
  5. LEXAPRO (ESCITALOPRAM OXALATE) (TABLETS) [Concomitant]
  6. PREVACID (LANSOPRAZOLE) (CAPSULES) [Concomitant]
  7. VELCADE (BORTEZOMIB) [Concomitant]
  8. VITAMIN C (ASCORBIC ACID) (TABLETS) [Concomitant]
  9. ZOMETA (ZOLEDRONIC ACID) (UNKNOWN) [Concomitant]

REACTIONS (2)
  - Hypersensitivity [None]
  - Blood pressure increased [None]
